FAERS Safety Report 8239766-1 (Version None)
Quarter: 2012Q1

REPORT INFORMATION
  Report Type: 
  Country: None (occurrence: None)
  Receive Date: 20120327
  Receipt Date: 20120327
  Transmission Date: 20120608
  Serious: Yes (Hospitalization)
  Sender: FDA-Public Use
  Company Number: None

PATIENT
  Age: 68 Year
  Sex: Male
  Weight: 64.5 kg

DRUGS (3)
  1. METOPROLOL SUCCINATE [Suspect]
     Indication: CORONARY ANGIOPLASTY
     Dosage: 25 MG OTHER
     Route: 050
     Dates: start: 20120308, end: 20120319
  2. METOPROLOL SUCCINATE [Suspect]
     Indication: HYPERTENSION
     Dosage: 25 MG OTHER
     Route: 050
     Dates: start: 20120308, end: 20120319
  3. METOPROLOL SUCCINATE [Suspect]
     Indication: CORONARY ARTERY DISEASE
     Dosage: 25 MG OTHER
     Route: 050
     Dates: start: 20120308, end: 20120319

REACTIONS (5)
  - CONFUSIONAL STATE [None]
  - BRADYCARDIA [None]
  - MENTAL STATUS CHANGES [None]
  - HYPOTENSION [None]
  - DIZZINESS [None]
